FAERS Safety Report 16889952 (Version 1)
Quarter: 2019Q4

REPORT INFORMATION
  Report Type: Spontaneous
  Country: US (occurrence: US)
  Receive Date: 20191004
  Receipt Date: 20191004
  Transmission Date: 20200122
  Serious: Yes (Hospitalization)
  Sender: FDA-Public Use
  Company Number: None

PATIENT
  Age: 40 Year
  Sex: Male
  Weight: 119 kg

DRUGS (6)
  1. DEXAMEDETOMIDINE 400MCG/NS 100ML IVPB [Concomitant]
     Dates: start: 20191001, end: 20191002
  2. FORMOTEROL 20MCG/2ML UPDRAFT [Concomitant]
     Dates: start: 20191001
  3. PEPCID 20MG/2ML INJ [Concomitant]
     Dates: start: 20191001, end: 20191002
  4. ACETAMINOPHEN 325MG TAB [Concomitant]
     Dates: start: 20191001
  5. KEPPRA [Suspect]
     Active Substance: LEVETIRACETAM
     Indication: SEIZURE
     Route: 042
     Dates: start: 20191001, end: 20191004
  6. BUDESONIDE 0.5MG/2ML UPDRAFT [Concomitant]
     Dates: start: 20191001

REACTIONS (2)
  - Blood creatine phosphokinase increased [None]
  - Rhabdomyolysis [None]

NARRATIVE: CASE EVENT DATE: 20191004
